FAERS Safety Report 18970089 (Version 2)
Quarter: 2022Q1

REPORT INFORMATION
  Report Type: Report from Study
  Country: US (occurrence: US)
  Receive Date: 20210304
  Receipt Date: 20220301
  Transmission Date: 20220423
  Serious: No
  Sender: FDA-Public Use
  Company Number: US-AMRYT PHARMACEUTICALS DAC-AEGR005025

PATIENT
  Age: 29 Year
  Sex: Female
  Weight: 65.986 kg

DRUGS (12)
  1. MYALEPT [Suspect]
     Active Substance: METRELEPTIN
     Indication: Congenital generalised lipodystrophy
     Dosage: 3.9 MILLIGRAM, QD
     Dates: start: 20130827
  2. MYALEPT [Suspect]
     Active Substance: METRELEPTIN
     Dosage: 4 MILLIGRAM, QD
     Route: 058
     Dates: start: 20141120
  3. MYALEPT [Suspect]
     Active Substance: METRELEPTIN
     Dosage: 5 MILLIGRAM, QD
     Route: 058
     Dates: start: 20201117
  4. MYALEPT [Suspect]
     Active Substance: METRELEPTIN
     Dosage: 0.6 MILLILITER, BID
     Route: 058
  5. MYALEPT [Suspect]
     Active Substance: METRELEPTIN
     Dosage: 5 MILLIGRAM, BID
  6. MIRENA [Suspect]
     Active Substance: LEVONORGESTREL
     Indication: Contraception
     Dosage: UNK
     Route: 015
     Dates: start: 20200701, end: 20200728
  7. BACTERIOSTATIC WATER [Concomitant]
     Active Substance: WATER
     Indication: Product used for unknown indication
  8. METFORMIN HYDROCHLORIDE [Concomitant]
     Active Substance: METFORMIN HYDROCHLORIDE
     Indication: Product used for unknown indication
  9. VALSARTAN [Concomitant]
     Active Substance: VALSARTAN
     Indication: Hypertension
     Dosage: 80 MILLIGRAM, QD
  10. FISH OIL [Concomitant]
     Active Substance: FISH OIL
     Indication: Hypertriglyceridaemia
     Dosage: 4 GRAM
     Dates: start: 2011
  11. METFORMIN [Concomitant]
     Active Substance: METFORMIN HYDROCHLORIDE
     Indication: Insulin resistance
     Dosage: 1000 MILLIGRAM, BID
     Dates: start: 1999
  12. FENOFIBRATE [Concomitant]
     Active Substance: FENOFIBRATE
     Indication: Hypertriglyceridaemia
     Dosage: 145 MILLIGRAM, QD
     Dates: start: 20211217

REACTIONS (7)
  - Weight increased [Recovered/Resolved]
  - Hyperphagia [Recovered/Resolved]
  - Hypertriglyceridaemia [Not Recovered/Not Resolved]
  - Weight increased [Recovered/Resolved]
  - Product dose omission issue [Recovered/Resolved]
  - Therapeutic product effect decreased [Not Recovered/Not Resolved]
  - Drug ineffective [Not Recovered/Not Resolved]

NARRATIVE: CASE EVENT DATE: 20200701
